FAERS Safety Report 12899404 (Version 1)
Quarter: 2016Q4

REPORT INFORMATION
  Report Type: Spontaneous
  Country: US (occurrence: US)
  Receive Date: 20161101
  Receipt Date: 20161101
  Transmission Date: 20170207
  Serious: Yes (Hospitalization, Other)
  Sender: FDA-Public Use
  Company Number: US-ASTELLAS-2016US042677

PATIENT
  Sex: Female

DRUGS (1)
  1. TARCEVA [Suspect]
     Active Substance: ERLOTINIB HYDROCHLORIDE
     Indication: PRODUCT USED FOR UNKNOWN INDICATION
     Route: 048
     Dates: start: 20160917

REACTIONS (5)
  - Clostridium difficile infection [Unknown]
  - Cerebral haemorrhage [Unknown]
  - Hip fracture [Unknown]
  - Diarrhoea haemorrhagic [Unknown]
  - Vomiting [Unknown]
